FAERS Safety Report 12965504 (Version 1)
Quarter: 2016Q4

REPORT INFORMATION
  Report Type: Spontaneous
  Country: US (occurrence: US)
  Receive Date: 20161122
  Receipt Date: 20161122
  Transmission Date: 20170207
  Serious: Yes (Hospitalization, Other)
  Sender: FDA-Public Use
  Company Number: US-BAYER-2016-220197

PATIENT
  Sex: Female
  Weight: 58.5 kg

DRUGS (3)
  1. DICYCLOMINE [Concomitant]
     Active Substance: DICYCLOMINE HYDROCHLORIDE
     Dosage: UNK
  2. ALEVE [Interacting]
     Active Substance: NAPROXEN SODIUM
     Indication: PAIN
     Dosage: 1 DF, ONCE
     Route: 048
  3. BAYER ASPIRIN REGIMEN CHEWABLE LOW DOSE ASPIRIN ORANGE [Suspect]
     Active Substance: ASPIRIN
     Indication: CEREBROVASCULAR ACCIDENT PROPHYLAXIS
     Dosage: 1 DF, QD
     Route: 048
     Dates: start: 2000, end: 2000

REACTIONS (11)
  - Irritable bowel syndrome [Recovered/Resolved]
  - Haematemesis [Recovered/Resolved]
  - Rectal haemorrhage [Recovered/Resolved]
  - Haemorrhagic anaemia [Recovered/Resolved]
  - Epigastric discomfort [Recovered/Resolved]
  - Gastric haemorrhage [None]
  - Labelled drug-drug interaction medication error [None]
  - Gastric ulcer [Recovered/Resolved]
  - Vomiting [Recovered/Resolved]
  - Haematuria [Recovered/Resolved]
  - Drug administration error [None]

NARRATIVE: CASE EVENT DATE: 2000
